FAERS Safety Report 6102540-6 (Version None)
Quarter: 2009Q1

REPORT INFORMATION
  Report Type: 
  Country: None (occurrence: None)
  Receive Date: 20090304
  Receipt Date: 20080915
  Transmission Date: 20090719
  Serious: Yes (Other)
  Sender: FDA-Public Use
  Company Number: A0741627A

PATIENT
  Age: 64 Year
  Sex: Male
  Weight: 91.4 kg

DRUGS (3)
  1. REQUIP [Suspect]
     Indication: DRUG USE FOR UNKNOWN INDICATION
     Route: 048
     Dates: start: 20080402, end: 20080429
  2. ASTHMA MEDICATION [Suspect]
  3. UNKNOWN [Suspect]
     Indication: PARKINSON'S DISEASE

REACTIONS (5)
  - ASTHMA [None]
  - DYSPNOEA [None]
  - HALLUCINATION [None]
  - NAUSEA [None]
  - SOMNOLENCE [None]
